FAERS Safety Report 25349655 (Version 4)
Quarter: 2025Q4

REPORT INFORMATION
  Report Type: Spontaneous
  Country: JP (occurrence: JP)
  Receive Date: 20250522
  Receipt Date: 20251229
  Transmission Date: 20260117
  Serious: Yes (Hospitalization)
  Sender: UCB
  Company Number: JP-UCBJ-CD202506627UCBPHAPROD

PATIENT
  Age: 45 Year
  Weight: 54 kg

DRUGS (2)
  1. FINTEPLA [Suspect]
     Active Substance: FENFLURAMINE
     Indication: Lennox-Gastaut syndrome
     Dosage: 11.8 MILLILITER, DAILY
     Route: 061
  2. FINTEPLA [Suspect]
     Active Substance: FENFLURAMINE
     Dosage: 0.58 MILLIGRAM/KILOGRAM, DAILY
     Route: 061

REACTIONS (3)
  - Fall [Recovered/Resolved]
  - Contusion [Recovered/Resolved]
  - Weight decreased [Unknown]
